FAERS Safety Report 10832128 (Version 4)
Quarter: 2015Q3

REPORT INFORMATION
  Report Type: Spontaneous
  Country: US (occurrence: US)
  Receive Date: 20150219
  Receipt Date: 20150820
  Transmission Date: 20151125
  Serious: Yes (Hospitalization, Disabling, Other)
  Sender: FDA-Public Use
  Company Number: US-GLAXOSMITHKLINE-US2015022511

PATIENT
  Age: 63 Year
  Sex: Male
  Weight: 112 kg

DRUGS (28)
  1. ANUSOL HC [Concomitant]
     Active Substance: HYDROCORTISONE
  2. MAGIC MOUTHWASH [Concomitant]
     Active Substance: DIPHENHYDRAMINE HYDROCHLORIDE\LIDOCAINE HYDROCHLORIDE\NYSTATIN
  3. PROCHLORPERAZINE MALEATE. [Concomitant]
     Active Substance: PROCHLORPERAZINE MALEATE
  4. SEPTRA DS [Concomitant]
     Active Substance: SULFAMETHOXAZOLE\TRIMETHOPRIM
  5. ENOXAPARIN [Concomitant]
     Active Substance: ENOXAPARIN
  6. ONDANSETRON [Concomitant]
     Active Substance: ONDANSETRON
  7. COREG [Concomitant]
     Active Substance: CARVEDILOL
  8. LORAZEPAM. [Concomitant]
     Active Substance: LORAZEPAM
  9. VOTRIENT [Suspect]
     Active Substance: PAZOPANIB HYDROCHLORIDE
     Indication: RENAL CANCER
     Dosage: 800 MG, QD
     Route: 048
     Dates: start: 20141112
  10. VOTRIENT [Suspect]
     Active Substance: PAZOPANIB HYDROCHLORIDE
     Indication: PROSTATE CANCER
     Dosage: 400 MG, QD
     Route: 048
     Dates: start: 20141231, end: 20150107
  11. FUROSEMIDE. [Concomitant]
     Active Substance: FUROSEMIDE
  12. AMBIEN [Concomitant]
     Active Substance: ZOLPIDEM TARTRATE
  13. METFORMIN [Concomitant]
     Active Substance: METFORMIN HYDROCHLORIDE
  14. PANTOPRAZOLE [Concomitant]
     Active Substance: PANTOPRAZOLE SODIUM
  15. IBUPROFEN. [Concomitant]
     Active Substance: IBUPROFEN
  16. LISINOPRIL. [Concomitant]
     Active Substance: LISINOPRIL
  17. ACETAMINOPHEN. [Concomitant]
     Active Substance: ACETAMINOPHEN
  18. AMLODIPINE BESYLATE. [Concomitant]
     Active Substance: AMLODIPINE BESYLATE
  19. FLUCONAZOLE. [Concomitant]
     Active Substance: FLUCONAZOLE
  20. COUMADIN [Concomitant]
     Active Substance: WARFARIN SODIUM
  21. PROMETHAZINE [Concomitant]
     Active Substance: PROMETHAZINE\PROMETHAZINE HYDROCHLORIDE
  22. LOVENOX [Concomitant]
     Active Substance: ENOXAPARIN SODIUM
  23. BACTRIM DS [Concomitant]
     Active Substance: SULFAMETHOXAZOLE\TRIMETHOPRIM
  24. DEXAMETHASONE. [Concomitant]
     Active Substance: DEXAMETHASONE
  25. LANTUS [Concomitant]
     Active Substance: INSULIN GLARGINE
  26. TYLENOL [Concomitant]
     Active Substance: ACETAMINOPHEN
  27. HYDROCODONE-APAP [Concomitant]
     Active Substance: ACETAMINOPHEN\HYDROCODONE
  28. CHLORHEXIDINE GLUCONATE. [Concomitant]
     Active Substance: CHLORHEXIDINE GLUCONATE

REACTIONS (16)
  - Decreased appetite [Recovered/Resolved]
  - Condition aggravated [Unknown]
  - Spinal osteoarthritis [Unknown]
  - Pulmonary artery stenosis [Unknown]
  - Haemorrhoids [Unknown]
  - Arteriosclerosis coronary artery [Unknown]
  - Dysphagia [Recovered/Resolved]
  - Diverticulum [Unknown]
  - Atelectasis [Unknown]
  - Weight decreased [Unknown]
  - Pulmonary fibrosis [Unknown]
  - Vomiting [Recovered/Resolved]
  - Nausea [Recovered/Resolved]
  - Rectal abscess [Unknown]
  - Pulmonary embolism [Unknown]
  - Skin irritation [Unknown]

NARRATIVE: CASE EVENT DATE: 201411
